FAERS Safety Report 6122166-8 (Version None)
Quarter: 2009Q1

REPORT INFORMATION
  Report Type: 
  Country: None (occurrence: None)
  Receive Date: 20090318
  Receipt Date: 20090310
  Transmission Date: 20090719
  Serious: Yes (Hospitalization, Other)
  Sender: FDA-Public Use
  Company Number: PHHY2008MX14277

PATIENT
  Sex: Female

DRUGS (2)
  1. DIOVAN HCT [Suspect]
     Indication: HYPERTENSION
     Dosage: 160/25 MG DAILY
     Route: 048
     Dates: start: 20070201, end: 20080701
  2. DIOVAN HCT [Suspect]
     Dosage: 160/25 MG DAILY
     Route: 048
     Dates: start: 20080701

REACTIONS (9)
  - BLOOD PRESSURE INCREASED [None]
  - DIZZINESS [None]
  - ENEMA ADMINISTRATION [None]
  - GASTRITIS [None]
  - HAEMORRHOIDS [None]
  - HYPOTENSION [None]
  - ILEUS PARALYTIC [None]
  - IRRITABLE BOWEL SYNDROME [None]
  - URINARY RETENTION [None]
